FAERS Safety Report 10217303 (Version 3)
Quarter: 2014Q2

REPORT INFORMATION
  Report Type: Spontaneous
  Country: JP (occurrence: JP)
  Receive Date: 20140604
  Receipt Date: 20140613
  Transmission Date: 20141212
  Serious: Yes (Death)
  Sender: FDA-Public Use
  Company Number: JP-PFIZER INC-2014128170

PATIENT
  Age: 62 Year
  Sex: Female
  Weight: 43 kg

DRUGS (9)
  1. PREDNISOLONE [Suspect]
     Indication: IMMUNE THROMBOCYTOPENIC PURPURA
     Dosage: 10 MG, DAILY
     Route: 048
  2. PREDNISOLONE [Suspect]
     Indication: AUTOIMMUNE HAEMOLYTIC ANAEMIA
     Dosage: 25 MG, DAILY
     Route: 048
  3. SOLU-MEDROL [Concomitant]
     Indication: IMMUNE THROMBOCYTOPENIC PURPURA
     Dosage: UNK
  4. SOLU-MEDROL [Concomitant]
     Indication: AUTOIMMUNE HAEMOLYTIC ANAEMIA
  5. LEVOFLOXACIN [Concomitant]
  6. MEROPENEM [Concomitant]
  7. MICAFUNGIN [Concomitant]
  8. SULFAMETHOXAZOLE/TRIMETHOPRIM [Concomitant]
  9. PENTAMIDINE [Concomitant]

REACTIONS (1)
  - Pneumocystis jirovecii pneumonia [Fatal]
